FAERS Safety Report 5761760-0 (Version None)
Quarter: 2008Q2

REPORT INFORMATION
  Report Type: 
  Country: None (occurrence: None)
  Receive Date: 20080606
  Receipt Date: 20080523
  Transmission Date: 20081010
  Serious: Yes (Other)
  Sender: FDA-Public Use
  Company Number: FR-GENENTECH-261622

PATIENT
  Sex: Female

DRUGS (3)
  1. LUCENTIS [Suspect]
     Indication: MACULAR DEGENERATION
     Dosage: UNK, SINGLE
     Route: 031
     Dates: start: 20080311
  2. LUCENTIS [Suspect]
     Dosage: UNK, SINGLE
     Route: 031
     Dates: start: 20080408
  3. LUCENTIS [Suspect]
     Dosage: UNK, SINGLE
     Route: 031
     Dates: start: 20080506

REACTIONS (1)
  - VISUAL ACUITY REDUCED [None]
